FAERS Safety Report 22114867 (Version 2)
Quarter: 2023Q2

REPORT INFORMATION
  Report Type: Spontaneous
  Country: US (occurrence: US)
  Receive Date: 20230320
  Receipt Date: 20230406
  Transmission Date: 20230722
  Serious: No
  Sender: FDA-Public Use
  Company Number: US-AMGEN-USASP2023046411

PATIENT
  Sex: Female

DRUGS (1)
  1. REPATHA [Suspect]
     Active Substance: EVOLOCUMAB
     Indication: Blood cholesterol abnormal
     Dosage: UNK, QMO
     Route: 065

REACTIONS (5)
  - COVID-19 [Unknown]
  - Injection site discolouration [Unknown]
  - Intentional product misuse [Unknown]
  - Pleurisy [Recovering/Resolving]
  - Device dispensing error [Unknown]
